FAERS Safety Report 16343839 (Version 1)
Quarter: 2019Q2

REPORT INFORMATION
  Report Type: Spontaneous
  Country: CN (occurrence: CN)
  Receive Date: 20190522
  Receipt Date: 20190522
  Transmission Date: 20190711
  Serious: Yes (Disabling)
  Sender: FDA-Public Use
  Company Number: CN-PFIZER INC-2019216769

PATIENT
  Age: 56 Year
  Sex: Male
  Weight: 47 kg

DRUGS (7)
  1. AMOXICILLIN SODIUM/SULBACTAM SODIUM [Suspect]
     Active Substance: AMPICILLIN SODIUM\SULBACTAM SODIUM
     Indication: INFECTION
  2. CELEBREX [Suspect]
     Active Substance: CELECOXIB
     Indication: PULMONARY SARCOIDOSIS
     Dosage: 0.200 G, 2X/DAY
     Route: 048
     Dates: start: 20190512, end: 20190516
  3. CELEBREX [Suspect]
     Active Substance: CELECOXIB
     Indication: INFLAMMATION
  4. CELEBREX [Suspect]
     Active Substance: CELECOXIB
     Indication: ANALGESIC THERAPY
  5. LEUCOGEN [Suspect]
     Active Substance: LEUCOGEN
     Indication: WHITE BLOOD CELL COUNT DECREASED
  6. AMOXICILLIN SODIUM/SULBACTAM SODIUM [Suspect]
     Active Substance: AMPICILLIN SODIUM\SULBACTAM SODIUM
     Indication: PULMONARY SARCOIDOSIS
     Dosage: 3.000 G, 2X/DAY
     Route: 041
     Dates: start: 20190507, end: 20190516
  7. LEUCOGEN [Suspect]
     Active Substance: LEUCOGEN
     Indication: NASOPHARYNGEAL CANCER
     Dosage: 20.000 MG, 3X/DAY
     Route: 048
     Dates: start: 20190509, end: 20190515

REACTIONS (2)
  - Gamma-glutamyltransferase increased [Unknown]
  - Transaminases increased [Unknown]

NARRATIVE: CASE EVENT DATE: 20190516
